FAERS Safety Report 13521768 (Version 1)
Quarter: 2017Q2

REPORT INFORMATION
  Report Type: Report from Study
  Country: US (occurrence: US)
  Receive Date: 20170508
  Receipt Date: 20170508
  Transmission Date: 20170830
  Serious: No
  Sender: FDA-Public Use
  Company Number: GXBR2017US001429

PATIENT
  Sex: Female

DRUGS (16)
  1. LEVOTHYROXINE. [Concomitant]
     Active Substance: LEVOTHYROXINE
     Dosage: UNK DF, UNK
  2. CALCIA MAGNESIUM [Concomitant]
     Dosage: UNK DF, UNK
  3. MULTI VIT [Concomitant]
     Dosage: UNK DF, UNK
  4. OMNITROPE [Suspect]
     Active Substance: SOMATROPIN
     Indication: HYPOPITUITARISM
     Dosage: 1.1 MG, QD
     Route: 058
     Dates: start: 20161017
  5. TYLENOL [Concomitant]
     Active Substance: ACETAMINOPHEN
     Dosage: UNK DF, UNK
  6. WELLBUTRIN SR [Concomitant]
     Active Substance: BUPROPION HYDROCHLORIDE
     Dosage: UNK DF, UNK
  7. CYTOMEL [Concomitant]
     Active Substance: LIOTHYRONINE SODIUM
     Dosage: UNK DF, UNK
  8. VITAMIN D [Concomitant]
     Active Substance: CHOLECALCIFEROL
     Dosage: UNK DF, UNK
  9. TESTOSTERONE. [Concomitant]
     Active Substance: TESTOSTERONE
     Dosage: UNK DF, UNK
  10. VIT B 12 [Concomitant]
     Dosage: UNK DF, UNK
  11. OMNITROPE [Suspect]
     Active Substance: SOMATROPIN
     Dosage: 0.9 MG, QD
     Route: 058
     Dates: start: 201308, end: 20161017
  12. COENZYME Q10 [Concomitant]
     Active Substance: UBIDECARENONE
     Dosage: UNK DF, UNK
  13. VIT B COMPLEX [Concomitant]
     Dosage: UNK DF, UNK
  14. VITAMIN C [Concomitant]
     Active Substance: ASCORBIC ACID
     Dosage: UNK DF, UNK
  15. AMBIEN [Concomitant]
     Active Substance: ZOLPIDEM TARTRATE
     Dosage: UNK DF, UNK
  16. FISH OIL [Concomitant]
     Active Substance: FISH OIL
     Dosage: UNK DF, UNK

REACTIONS (4)
  - Feeling cold [Unknown]
  - Tendonitis [Unknown]
  - Arthralgia [Unknown]
  - Fatigue [Unknown]
